FAERS Safety Report 19613066 (Version 1)
Quarter: 2021Q3

REPORT INFORMATION
  Report Type: Spontaneous
  Country: US (occurrence: US)
  Receive Date: 20210727
  Receipt Date: 20210727
  Transmission Date: 20211014
  Serious: No
  Sender: FDA-Public Use
  Company Number: US-SCIEGENPHARMA-2021SCISPO00584

PATIENT
  Sex: Female
  Weight: 49 kg

DRUGS (1)
  1. ATORVASTATIN CALCIUM. [Suspect]
     Active Substance: ATORVASTATIN CALCIUM
     Indication: BLOOD CHOLESTEROL INCREASED
     Route: 048

REACTIONS (7)
  - Drug ineffective [Unknown]
  - Dysgeusia [Unknown]
  - Product taste abnormal [Unknown]
  - Hypersensitivity [Unknown]
  - Headache [Unknown]
  - Hypertension [Unknown]
  - Product substitution issue [Unknown]
